FAERS Safety Report 4323499-8 (Version None)
Quarter: 2004Q1

REPORT INFORMATION
  Report Type: 
  Country: None (occurrence: None)
  Receive Date: 20040325
  Receipt Date: 20040211
  Transmission Date: 20041129
  Serious: Yes (Hospitalization)
  Sender: FDA-Public Use
  Company Number: PHBS2004BR02152

PATIENT
  Age: 40 Year
  Sex: Female

DRUGS (4)
  1. CATAFLAM [Suspect]
     Dosage: 75 MG, ONCE/SINGLE
     Route: 030
     Dates: start: 20030703, end: 20030703
  2. DECADRON [Concomitant]
     Dosage: 4 MG/DAY
     Route: 042
  3. ANALGESIC LIQ [Concomitant]
  4. TEGRETOL [Concomitant]
     Dosage: 200 MG/DAY
     Route: 048

REACTIONS (2)
  - INJECTION SITE ABSCESS [None]
  - INJECTION SITE INFECTION [None]
